FAERS Safety Report 10239840 (Version 2)
Quarter: 2014Q2

REPORT INFORMATION
  Report Type: Report from Study
  Country: BR (occurrence: BR)
  Receive Date: 20140616
  Receipt Date: 20140616
  Transmission Date: 20141212
  Serious: Yes (Other)
  Sender: FDA-Public Use
  Company Number: BR-ABBVIE-13P-020-1156654-00

PATIENT
  Age: 59 Year
  Sex: Female
  Weight: 76 kg

DRUGS (7)
  1. HUMIRA [Suspect]
     Indication: PSORIATIC ARTHROPATHY
     Route: 058
     Dates: end: 20140301
  2. TECNOMET [Concomitant]
     Indication: ARTHRITIS
     Dosage: ON SATURDAYS AND SUNDAYS
     Route: 048
     Dates: start: 2008
  3. FLUOR HYDROCORTISONE [Concomitant]
     Indication: CARDIAC DISORDER
     Dosage: 0.2 MG DAILY
     Route: 048
     Dates: start: 20110101
  4. GLUCOSAMINE + UC2 [Concomitant]
     Indication: EXOSTOSIS
     Dosage: 2 CAPSULE DAILY, 700MG / 20MG
     Route: 048
     Dates: start: 20131001
  5. MELOXICAM/DEFLAZACORT/CYCLOBENZAPRINE (FORMULA) [Concomitant]
     Indication: BACK PAIN
     Dosage: 15MG/6.75MG/2.5MG
     Route: 048
     Dates: start: 20131001
  6. MELOXICAM/DEFLAZACORT/CYCLOBENZAPRINE (FORMULA) [Concomitant]
     Indication: EXOSTOSIS
  7. METHOTREXATE [Concomitant]
     Indication: ARTHRITIS
     Dosage: ON SATURDAYS AND SUNDAYS
     Route: 048
     Dates: start: 20090101

REACTIONS (6)
  - Fall [Recovering/Resolving]
  - Tendon injury [Recovering/Resolving]
  - Bone disorder [Recovering/Resolving]
  - Labyrinthitis [Unknown]
  - Pain [Not Recovered/Not Resolved]
  - Drug ineffective [Not Recovered/Not Resolved]
